FAERS Safety Report 11270973 (Version 1)
Quarter: 2015Q3

REPORT INFORMATION
  Report Type: Spontaneous
  Country: US (occurrence: US)
  Receive Date: 20150714
  Receipt Date: 20150714
  Transmission Date: 20151125
  Serious: No
  Sender: FDA-Public Use
  Company Number: US-BAUSCH-BL-2015-015292

PATIENT
  Age: 41 Year
  Sex: Female
  Weight: 90.8 kg

DRUGS (8)
  1. TRIFLURIDINE EYE DROPS [Concomitant]
     Dosage: 1 DROP IN THE RIGHT EYE
     Route: 061
     Dates: start: 20150604, end: 20150611
  2. LOTEMAX [Suspect]
     Active Substance: LOTEPREDNOL ETABONATE
     Dosage: 1 DROP 3 TIMES DAILY FOR 2 WEEKS
     Route: 061
  3. ACYCLOVIR. [Concomitant]
     Active Substance: ACYCLOVIR
     Route: 048
  4. LOTEMAX [Suspect]
     Active Substance: LOTEPREDNOL ETABONATE
     Indication: OPHTHALMIC HERPES SIMPLEX
     Dosage: 1 DROP IN THE LEFT EYE
     Route: 061
     Dates: start: 20150602
  5. TRIFLURIDINE EYE DROPS [Concomitant]
     Indication: OPHTHALMIC HERPES SIMPLEX
     Dosage: 1 DROP IN THE RIGHT EYE
     Route: 061
  6. LOTEMAX [Suspect]
     Active Substance: LOTEPREDNOL ETABONATE
     Dosage: 1 DROP IN THE LEFT EYE
     Route: 061
  7. ACYCLOVIR. [Concomitant]
     Active Substance: ACYCLOVIR
     Route: 048
  8. ACYCLOVIR. [Concomitant]
     Active Substance: ACYCLOVIR
     Indication: OPHTHALMIC HERPES SIMPLEX
     Route: 048
     Dates: start: 20150602

REACTIONS (2)
  - Poor quality drug administered [Unknown]
  - No adverse event [Unknown]

NARRATIVE: CASE EVENT DATE: 20150602
